FAERS Safety Report 16387717 (Version 1)
Quarter: 2019Q2

REPORT INFORMATION
  Report Type: Spontaneous
  Country: US (occurrence: US)
  Receive Date: 20190426
  Receipt Date: 20190426
  Transmission Date: 20190711
  Serious: Yes (Other)
  Sender: FDA-Public Use
  Company Number: None

PATIENT
  Age: 79 Year
  Sex: Female
  Weight: 52.62 kg

DRUGS (7)
  1. NALTREXONE, 50MG TABLET [Suspect]
     Active Substance: NALTREXONE HYDROCHLORIDE
     Indication: PAIN
     Dosage: ?          QUANTITY:1 PILL;?
     Route: 048
     Dates: start: 20190416, end: 20190417
  2. TAMOXIFEN 20 MCG [Concomitant]
     Active Substance: TAMOXIFEN
     Dosage: ?          QUANTITY:1 TABLET;?
  3. CENTRUM SILVER FOR WOMEN [Concomitant]
     Active Substance: MINERALS\VITAMINS
  4. NALTREXONE, 50MG TABLET [Suspect]
     Active Substance: NALTREXONE HYDROCHLORIDE
     Indication: INSOMNIA
     Dosage: ?          QUANTITY:1 PILL;?
     Route: 048
     Dates: start: 20190416, end: 20190417
  5. PROLIA [Concomitant]
     Active Substance: DENOSUMAB
     Dosage: ?          OTHER FREQUENCY:TWICE A YEAR;OTHER ROUTE:SUBCUTANEOUS?
     Dates: end: 20190121
  6. BENEFIBER [Concomitant]
     Active Substance: STARCH, WHEAT
  7. SYNTHROID [Concomitant]
     Active Substance: LEVOTHYROXINE SODIUM
     Dosage: ?          QUANTITY:1 TABLET;OTHER FREQUENCY:DAILY FOR 6 DAYS;?
     Route: 048

REACTIONS (1)
  - Muscle spasms [None]

NARRATIVE: CASE EVENT DATE: 20190417
